FAERS Safety Report 21390804 (Version 1)
Quarter: 2022Q3

REPORT INFORMATION
  Report Type: Spontaneous
  Country: DE (occurrence: DE)
  Receive Date: 20220929
  Receipt Date: 20220929
  Transmission Date: 20221026
  Serious: Yes (Hospitalization)
  Sender: FDA-Public Use
  Company Number: DE-NOVARTISPH-NVSC2022DE217831

PATIENT
  Age: 54 Year
  Sex: Male

DRUGS (14)
  1. BISOPROLOL [Suspect]
     Active Substance: BISOPROLOL
     Indication: Product used for unknown indication
     Dosage: 5 MG, QD (5 MG, 1-0-0-0)
     Route: 048
  2. RAMIPRIL [Concomitant]
     Active Substance: RAMIPRIL
     Indication: Product used for unknown indication
     Dosage: 10 MG, QD (10 MG, 1-0-0-0)
     Route: 048
  3. POTASSIUM CHLORIDE [Concomitant]
     Active Substance: POTASSIUM CHLORIDE
     Indication: Product used for unknown indication
     Dosage: UNK UNK, QD (1-0-0-0)
     Route: 048
  4. METAMIZOLE [Concomitant]
     Active Substance: METAMIZOLE
     Indication: Product used for unknown indication
     Dosage: 500 MG, TID (500 MG, 1-1-1-0)
     Route: 048
  5. AZITHROMYCIN [Concomitant]
     Active Substance: AZITHROMYCIN
     Indication: Product used for unknown indication
     Dosage: 500 MG (500 MG, EINE TABLETTE DIENSTAGS DONNERSTAGS SAMSTAGS)
     Route: 048
  6. AMLODIPINE BESYLATE [Concomitant]
     Active Substance: AMLODIPINE BESYLATE
     Indication: Product used for unknown indication
     Dosage: 10 MG, QD (10 MG, 1-0-0-0)
     Route: 048
  7. ALENDRONAT ACIS [Concomitant]
     Indication: Product used for unknown indication
     Dosage: 70 MG (70 MG, EINMAL PRO WOCHE)
     Route: 048
  8. BUDESONIDE [Concomitant]
     Active Substance: BUDESONIDE
     Indication: Product used for unknown indication
     Dosage: 200 MG, BID (200 MG, 1-0-1-0)
  9. CHOLECALCIFEROL [Concomitant]
     Active Substance: CHOLECALCIFEROL
     Indication: Product used for unknown indication
     Dosage: 1000 IU, QD (1000 IE, 1-0-0-0)
     Route: 048
  10. SPIRONOLACTONE [Concomitant]
     Active Substance: SPIRONOLACTONE
     Indication: Product used for unknown indication
     Dosage: 50 MG,  QD (50 MG, 1-0-0-0)
     Route: 048
  11. ALBUTEROL [Concomitant]
     Active Substance: ALBUTEROL
     Indication: Product used for unknown indication
     Dosage: UNK (BEI BEDARF)
  12. CALCIUM ACETATE [Concomitant]
     Active Substance: CALCIUM ACETATE
     Indication: Product used for unknown indication
     Dosage: UNK, QD (1-0-0-0)
     Route: 048
  13. GLYCOPYRRONIUM\INDACATEROL [Concomitant]
     Active Substance: GLYCOPYRRONIUM\INDACATEROL
     Indication: Product used for unknown indication
     Dosage: UNK UNK, QD (43|85 ?G, 1-0-0-0)
  14. ACETIAMINE [Concomitant]
     Indication: Product used for unknown indication
     Dosage: 100 MG, QD (100 MG, 1-0-0-0)
     Route: 048

REACTIONS (2)
  - Chronic obstructive pulmonary disease [Unknown]
  - Dyspnoea [Unknown]

NARRATIVE: CASE EVENT DATE: 20210404
